FAERS Safety Report 7302867-6 (Version None)
Quarter: 2011Q1

REPORT INFORMATION
  Report Type: 
  Country: None (occurrence: None)
  Receive Date: 20110218
  Receipt Date: 20110214
  Transmission Date: 20110831
  Serious: Yes (Hospitalization, Other)
  Sender: FDA-Public Use
  Company Number: US-RB-018888-10

PATIENT
  Sex: Female
  Weight: 2 kg

DRUGS (2)
  1. SUBOXONE [Suspect]
     Indication: DRUG DEPENDENCE
     Route: 064
     Dates: start: 20100201, end: 20100301
  2. SUBUTEX [Suspect]
     Indication: DRUG DEPENDENCE
     Route: 064
     Dates: start: 20100301, end: 20101001

REACTIONS (2)
  - DRUG EXPOSURE DURING PREGNANCY [None]
  - PREMATURE BABY [None]
